FAERS Safety Report 6163988-7 (Version None)
Quarter: 2009Q2

REPORT INFORMATION
  Report Type: 
  Country: None (occurrence: None)
  Receive Date: 20090422
  Receipt Date: 20090422
  Transmission Date: 20091009
  Serious: Yes (Other)
  Sender: FDA-Public Use
  Company Number: US-PFIZER INC-2009185240

PATIENT
  Sex: Female
  Weight: 74.83 kg

DRUGS (10)
  1. LYRICA [Suspect]
     Indication: SCIATICA
     Dosage: 75 MG, 2X/DAY
     Dates: start: 20090224, end: 20090317
  2. HYDROXYZINE HCL [Suspect]
     Indication: RASH
     Dates: start: 20090317
  3. HYDROXYZINE HCL [Suspect]
     Indication: URTICARIA
  4. ZOCOR [Concomitant]
  5. GLUCOPHAGE [Concomitant]
  6. GLIMEPIRIDE [Concomitant]
  7. COREG [Concomitant]
  8. ACETYLSALICYLIC ACID [Concomitant]
  9. NIACIN [Concomitant]
     Dosage: 500 MG, 1X/DAY
  10. ZESTORETIC [Concomitant]
     Dosage: UNK

REACTIONS (4)
  - DYSPHAGIA [None]
  - LIP SWELLING [None]
  - OESOPHAGEAL OEDEMA [None]
  - URTICARIA [None]
